FAERS Safety Report 13539108 (Version 3)
Quarter: 2017Q3

REPORT INFORMATION
  Report Type: Spontaneous
  Country: DE (occurrence: DE)
  Receive Date: 20170512
  Receipt Date: 20170817
  Transmission Date: 20171127
  Serious: Yes (Other)
  Sender: FDA-Public Use
  Company Number: PHHY2017DE067652

PATIENT
  Age: 26 Year
  Sex: Female

DRUGS (2)
  1. GLIVEC [Suspect]
     Active Substance: IMATINIB MESYLATE
     Indication: CHRONIC MYELOID LEUKAEMIA
     Dosage: UNK
     Route: 065
     Dates: start: 200912, end: 201404
  2. DASATINIB [Concomitant]
     Active Substance: DASATINIB
     Indication: CHRONIC MYELOID LEUKAEMIA
     Dosage: UNK
     Route: 065
     Dates: start: 201404, end: 201608

REACTIONS (9)
  - Night sweats [Unknown]
  - Autoimmune thyroiditis [Unknown]
  - Fatigue [Unknown]
  - Feeling cold [Unknown]
  - Alopecia [Unknown]
  - Hypothalamo-pituitary disorder [Unknown]
  - Hypogonadism [Unknown]
  - Muscle spasms [Unknown]
  - Amenorrhoea [Unknown]

NARRATIVE: CASE EVENT DATE: 201206
